FAERS Safety Report 17913888 (Version 5)
Quarter: 2022Q3

REPORT INFORMATION
  Report Type: Spontaneous
  Country: US (occurrence: US)
  Receive Date: 20200618
  Receipt Date: 20220906
  Transmission Date: 20221026
  Serious: Yes (Hospitalization)
  Sender: FDA-Public Use
  Company Number: US-TEVA-2020-US-1510324

PATIENT
  Age: 63 Year
  Sex: Male

DRUGS (6)
  1. BUPROPION [Interacting]
     Active Substance: BUPROPION
     Indication: Depression
     Dosage: CHRONIC REGIMEN
     Route: 048
  2. BUSPIRONE [Interacting]
     Active Substance: BUSPIRONE HYDROCHLORIDE
     Indication: Depression
     Dosage: 60 MILLIGRAM DAILY; CHRONIC REGIMEN
     Route: 048
  3. TRAZODONE [Interacting]
     Active Substance: TRAZODONE HYDROCHLORIDE
     Indication: Depression
     Dosage: 50 MILLIGRAM DAILY; CHRONIC REGIMEN
     Route: 048
  4. DESVENLAFAXINE [Interacting]
     Active Substance: DESVENLAFAXINE
     Indication: Depression
     Dosage: CHRONIC REGIMEN
     Route: 048
  5. ZIPRASIDONE [Interacting]
     Active Substance: ZIPRASIDONE
     Indication: Depression
     Dosage: 80 MILLIGRAM DAILY; CHRONIC REGIMEN
     Route: 048
  6. HERBALS\MITRAGYNINE [Interacting]
     Active Substance: HERBALS\MITRAGYNINE
     Indication: Depression
     Route: 048

REACTIONS (2)
  - Serotonin syndrome [Recovered/Resolved]
  - Drug interaction [Recovering/Resolving]
